FAERS Safety Report 5038510-9 (Version None)
Quarter: 2006Q2

REPORT INFORMATION
  Report Type: 
  Country: None (occurrence: None)
  Receive Date: 20060629
  Receipt Date: 20060616
  Transmission Date: 20061013
  Serious: Yes (Death)
  Sender: FDA-Public Use
  Company Number: 2006PK01328

PATIENT
  Age: 61 Year
  Sex: Male

DRUGS (11)
  1. SEROQUEL [Suspect]
     Route: 048
     Dates: start: 20020111, end: 20020114
  2. IXEL A [Suspect]
     Route: 048
     Dates: start: 20011025, end: 20020109
  3. IXEL A [Suspect]
     Route: 048
     Dates: start: 20020109, end: 20020114
  4. TOLVON [Suspect]
     Route: 048
     Dates: start: 20011108, end: 20020114
  5. NEUROTOP [Suspect]
     Route: 048
     Dates: start: 20020111, end: 20020114
  6. TEMESTA [Suspect]
     Route: 048
     Dates: start: 20011006, end: 20020114
  7. TRAMADOL HCL [Concomitant]
     Route: 048
     Dates: start: 20011207, end: 20020114
  8. SUPRESSIN [Concomitant]
     Route: 048
     Dates: start: 19990101, end: 20020114
  9. PANTOPRAZOLE SODIUM [Concomitant]
     Route: 048
     Dates: start: 20000101, end: 20020114
  10. TANATRIL [Concomitant]
     Route: 048
     Dates: start: 19990101, end: 20020114
  11. FOSAMAX [Concomitant]
     Route: 048
     Dates: start: 19990101, end: 20020114

REACTIONS (8)
  - ASPIRATION [None]
  - DEATH [None]
  - DIARRHOEA [None]
  - ENCEPHALITIS [None]
  - HAEMATEMESIS [None]
  - RESPIRATORY ARREST [None]
  - SHOCK [None]
  - VOMITING [None]
